FAERS Safety Report 15348942 (Version 6)
Quarter: 2019Q1

REPORT INFORMATION
  Report Type: Report from Study
  Country: DE (occurrence: DE)
  Receive Date: 20180904
  Receipt Date: 20190111
  Transmission Date: 20190417
  Serious: No
  Sender: FDA-Public Use
  Company Number: DE-CELGENEUS-DEU-20180810113

PATIENT
  Age: 47 Year
  Sex: Female

DRUGS (9)
  1. ERYTHROPOETIN [Concomitant]
     Active Substance: ERYTHROPOIETIN
     Indication: PROPHYLACTIC CHEMOTHERAPY
     Route: 065
     Dates: start: 20180329
  2. ABRAXANE [Suspect]
     Active Substance: PACLITAXEL
     Route: 041
  3. ABRAXANE [Suspect]
     Active Substance: PACLITAXEL
     Indication: BREAST CANCER
     Route: 041
     Dates: start: 20180301, end: 20180329
  4. DEXAMETHASONE. [Concomitant]
     Active Substance: DEXAMETHASONE
     Indication: DISCOMFORT
  5. DEXAMETHASONE. [Concomitant]
     Active Substance: DEXAMETHASONE
     Indication: BREAST CANCER
     Dosage: 8 MILLIGRAM
     Route: 041
     Dates: start: 20180301
  6. DEXAMETHASONE. [Concomitant]
     Active Substance: DEXAMETHASONE
     Indication: CHEMOTHERAPY
     Route: 065
     Dates: start: 20180329, end: 20180823
  7. ZOPICLON [Concomitant]
     Active Substance: ZOPICLONE
     Indication: SLEEP DISORDER
     Route: 065
     Dates: start: 20180329
  8. METOCLOPRAMID [Concomitant]
     Active Substance: METOCLOPRAMIDE
     Indication: PROPHYLAXIS
     Route: 065
     Dates: start: 20180301, end: 20180531
  9. METOCLOPRAMID [Concomitant]
     Active Substance: METOCLOPRAMIDE
     Indication: CHEMOTHERAPY

REACTIONS (1)
  - Thrombocytopenia [Recovered/Resolved]

NARRATIVE: CASE EVENT DATE: 20180329
